FAERS Safety Report 16310186 (Version 1)
Quarter: 2019Q2

REPORT INFORMATION
  Report Type: Spontaneous
  Country: US (occurrence: US)
  Receive Date: 20190514
  Receipt Date: 20190514
  Transmission Date: 20190711
  Serious: Yes (Death)
  Sender: FDA-Public Use
  Company Number: US-LEXICON PHARMACEUTICALS, INC-19-1606-00524

PATIENT
  Age: 82 Year
  Sex: Male

DRUGS (27)
  1. OMEPRAZOLE. [Concomitant]
     Active Substance: OMEPRAZOLE
  2. ELIQUIS [Concomitant]
     Active Substance: APIXABAN
  3. PRAVACHOL [Concomitant]
     Active Substance: PRAVASTATIN SODIUM
  4. COLCRYS [Concomitant]
     Active Substance: COLCHICINE
  5. MULTIVITAMIN [Concomitant]
     Active Substance: VITAMINS
  6. SOMATULINE [Concomitant]
     Active Substance: LANREOTIDE ACETATE
  7. VITAMIN D3 [Concomitant]
     Active Substance: CHOLECALCIFEROL
  8. COENZYME Q10 [Concomitant]
     Active Substance: UBIDECARENONE
  9. NITROSTAT [Concomitant]
     Active Substance: NITROGLYCERIN
  10. TELOTRISTAT ETHYL [Suspect]
     Active Substance: TELOTRISTAT ETHYL
     Indication: NEUROENDOCRINE TUMOUR
     Route: 048
     Dates: start: 20190425, end: 2019
  11. LANTUS [Concomitant]
     Active Substance: INSULIN GLARGINE
  12. CLONAZEPAM. [Concomitant]
     Active Substance: CLONAZEPAM
  13. ENTRESTO [Concomitant]
     Active Substance: SACUBITRIL\VALSARTAN
  14. SPIRONOLACTONE. [Concomitant]
     Active Substance: SPIRONOLACTONE
  15. PROSCAR [Concomitant]
     Active Substance: FINASTERIDE
  16. SANDOSTATIN [Concomitant]
     Active Substance: OCTREOTIDE ACETATE
  17. DIPHENHYDRAMINE. [Concomitant]
     Active Substance: DIPHENHYDRAMINE
  18. COREG [Concomitant]
     Active Substance: CARVEDILOL
  19. TELOTRISTAT ETHYL [Suspect]
     Active Substance: TELOTRISTAT ETHYL
     Indication: NEUROENDOCRINE TUMOUR
  20. FOLIC ACID. [Concomitant]
     Active Substance: FOLIC ACID
  21. TORSEMIDE. [Concomitant]
     Active Substance: TORSEMIDE
  22. FLOVENT [Concomitant]
     Active Substance: FLUTICASONE PROPIONATE
  23. PERI-COLACE [Concomitant]
     Active Substance: CASANTHRANOL\DOCUSATE SODIUM
  24. ZYLOPRIM [Concomitant]
     Active Substance: ALLOPURINOL
  25. AFINITOR [Concomitant]
     Active Substance: EVEROLIMUS
  26. SPIRIVA [Concomitant]
     Active Substance: TIOTROPIUM BROMIDE MONOHYDRATE
  27. FERROUS SULFATE. [Concomitant]
     Active Substance: FERROUS SULFATE

REACTIONS (1)
  - Death [Fatal]

NARRATIVE: CASE EVENT DATE: 20190507
